FAERS Safety Report 24911478 (Version 2)
Quarter: 2025Q1

REPORT INFORMATION
  Report Type: Spontaneous
  Country: US (occurrence: US)
  Receive Date: 20250131
  Receipt Date: 20250204
  Transmission Date: 20250409
  Serious: No
  Sender: Haleon PLC
  Company Number: US-HALEON-2225497

PATIENT
  Sex: Female

DRUGS (1)
  1. SENSODYNE PRONAMEL GENTLE WHITENING [Suspect]
     Active Substance: POTASSIUM NITRATE\SODIUM FLUORIDE
     Indication: Dental disorder prophylaxis

REACTIONS (5)
  - Feeling cold [Unknown]
  - Poor quality product administered [Unknown]
  - Hyperaesthesia teeth [Unknown]
  - Drug ineffective [Unknown]
  - Product complaint [Unknown]
